FAERS Safety Report 9286553 (Version 1)
Quarter: 2013Q2

REPORT INFORMATION
  Report Type: Spontaneous
  Country: CA (occurrence: CA)
  Receive Date: 20130513
  Receipt Date: 20130513
  Transmission Date: 20140414
  Serious: Yes (Life-Threatening, Hospitalization, Disabling, Other)
  Sender: FDA-Public Use
  Company Number: CA-B.I. PHARMACEUTICALS,INC./RIDGEFIELD-2013-CN-00833CN

PATIENT
  Age: 76 Year
  Sex: Female
  Weight: 48 kg

DRUGS (7)
  1. PRADAX [Suspect]
     Dosage: 220 MG
     Route: 048
  2. ASA [Concomitant]
  3. CLOPIDOGREL [Concomitant]
  4. ENOXAPARIN [Concomitant]
  5. PROPAFENONE [Concomitant]
  6. RAMIPRIL [Concomitant]
  7. SIMVASTATIN [Concomitant]

REACTIONS (5)
  - Acute myocardial infarction [Not Recovered/Not Resolved]
  - Hemiplegia [Not Recovered/Not Resolved]
  - Hypoaesthesia [Not Recovered/Not Resolved]
  - Cerebral haemorrhage [Not Recovered/Not Resolved]
  - Spinal cord haemorrhage [Not Recovered/Not Resolved]
